FAERS Safety Report 16858812 (Version 3)
Quarter: 2020Q3

REPORT INFORMATION
  Report Type: Spontaneous
  Country: US (occurrence: US)
  Receive Date: 20190926
  Receipt Date: 20200819
  Transmission Date: 20201102
  Serious: Yes (Hospitalization, Other)
  Sender: FDA-Public Use
  Company Number: US-ACTELION-A-US2019-196047

PATIENT
  Sex: Male
  Weight: 18.14 kg

DRUGS (2)
  1. TADALAFIL. [Concomitant]
     Active Substance: TADALAFIL
  2. TRACLEER [Suspect]
     Active Substance: BOSENTAN
     Indication: PULMONARY ARTERIAL HYPERTENSION
     Dosage: 31.25 MG, QD
     Route: 048

REACTIONS (5)
  - Cardiac operation [Unknown]
  - Loss of consciousness [Unknown]
  - Catheterisation cardiac [Unknown]
  - Food allergy [Unknown]
  - Constipation [Unknown]
